FAERS Safety Report 4822070-9 (Version None)
Quarter: 2005Q4

REPORT INFORMATION
  Report Type: 
  Country: None (occurrence: None)
  Receive Date: 20051103
  Receipt Date: 20051021
  Transmission Date: 20060501
  Serious: Yes (Other)
  Sender: FDA-Public Use
  Company Number: 2005-DE-04403GD

PATIENT

DRUGS (6)
  1. ZIDOVUDINE [Suspect]
     Indication: HIV INFECTION
  2. RITONAVIR                (RITONAVIR) [Suspect]
     Indication: HIV INFECTION
     Dosage: 200 MG (SEE TEXT, BID)
  3. AMPRENAVIR (AMPRENAVIR) [Suspect]
     Indication: HIV INFECTION
     Dosage: 1200 MG (SEE TEXT, BID)
  4. LAMIVUDINE [Suspect]
     Indication: HIV INFECTION
  5. DIDANOSINE [Suspect]
     Indication: HIV INFECTION
  6. TENOFOVIR (TENOFOVIR) [Suspect]
     Indication: HIV INFECTION

REACTIONS (2)
  - DRUG INEFFECTIVE [None]
  - DRUG RESISTANCE [None]
